FAERS Safety Report 20254408 (Version 3)
Quarter: 2022Q1

REPORT INFORMATION
  Report Type: Other
  Country: CA (occurrence: CA)
  Receive Date: 20211230
  Receipt Date: 20220330
  Transmission Date: 20220424
  Serious: Yes (Other)
  Sender: FDA-Public Use
  Company Number: CA-002147023-NVSC2021CA291477

PATIENT
  Sex: Female

DRUGS (9)
  1. XOLAIR [Suspect]
     Active Substance: OMALIZUMAB
     Indication: Chronic spontaneous urticaria
     Dosage: 300 MG, Q4W
     Route: 058
     Dates: start: 20211216
  2. ZANTAC [Concomitant]
     Active Substance: RANITIDINE HYDROCHLORIDE
     Indication: Product used for unknown indication
     Dosage: 1 DOSAGE FORM, BID
     Route: 048
     Dates: start: 202001
  3. CETIRIZINE HYDROCHLORIDE [Concomitant]
     Active Substance: CETIRIZINE HYDROCHLORIDE
     Indication: Product used for unknown indication
     Dosage: 1 DOSAGE FORM, PRN
     Route: 048
  4. BENADRYL [Concomitant]
     Active Substance: DIPHENHYDRAMINE HYDROCHLORIDE
     Indication: Product used for unknown indication
     Dosage: 1 DOSAGE FORM, PRN
     Route: 048
  5. VENTOLIN [Concomitant]
     Active Substance: ALBUTEROL SULFATE
     Indication: Product used for unknown indication
     Dosage: 1 DOSAGE FORM, PRN
     Route: 055
  6. KETOTIFEN [Concomitant]
     Active Substance: KETOTIFEN
     Indication: Product used for unknown indication
     Dosage: 1 DOSAGE FORM, BID
     Route: 048
     Dates: start: 202006
  7. CROMOLYN SODIUM [Concomitant]
     Active Substance: CROMOLYN SODIUM
     Indication: Product used for unknown indication
     Dosage: 4 DOSAGE FORM, QD
     Route: 048
  8. RUPATADINE FUMARATE [Concomitant]
     Active Substance: RUPATADINE FUMARATE
     Indication: Product used for unknown indication
     Dosage: 1 DOSAGE FORM, BID
     Route: 048
     Dates: start: 202001
  9. DEXAMETHASONE [Concomitant]
     Active Substance: DEXAMETHASONE
     Indication: Product used for unknown indication

REACTIONS (16)
  - Anaphylactic reaction [Unknown]
  - Rash macular [Unknown]
  - Pharyngeal paraesthesia [Recovering/Resolving]
  - Eructation [Unknown]
  - Skin burning sensation [Recovering/Resolving]
  - Throat irritation [Unknown]
  - Vertigo [Unknown]
  - Salivary hypersecretion [Unknown]
  - Abdominal discomfort [Unknown]
  - Retching [Recovering/Resolving]
  - Paraesthesia [Unknown]
  - Nausea [Not Recovered/Not Resolved]
  - Pruritus [Not Recovered/Not Resolved]
  - Drug hypersensitivity [Unknown]
  - Urinary tract infection [Unknown]
  - Back injury [Unknown]

NARRATIVE: CASE EVENT DATE: 20211216
